FAERS Safety Report 18952784 (Version 1)
Quarter: 2021Q1

REPORT INFORMATION
  Report Type: Spontaneous
  Country: AU (occurrence: AU)
  Receive Date: 20210301
  Receipt Date: 20210301
  Transmission Date: 20210420
  Serious: Yes (Other)
  Sender: FDA-Public Use
  Company Number: NVSC2021AU039632

PATIENT
  Age: 81 Year
  Sex: Male

DRUGS (9)
  1. SACUBITRIL,VALSARTAN [Suspect]
     Active Substance: SACUBITRIL\VALSARTAN
     Dosage: UNK, BID (49/51MG)
     Route: 065
  2. SPIRONOLACTONE. [Suspect]
     Active Substance: SPIRONOLACTONE
     Indication: PRODUCT USED FOR UNKNOWN INDICATION
     Dosage: 25 MG, QD
     Route: 065
  3. BISOPROLOL [Suspect]
     Active Substance: BISOPROLOL
     Indication: CARDIAC FAILURE
     Dosage: 2.5 MG, QD
     Route: 065
  4. FRUSEMIDE SANDOZ [Suspect]
     Active Substance: FUROSEMIDE
     Indication: PRODUCT USED FOR UNKNOWN INDICATION
     Dosage: 40 MG, QD
     Route: 065
  5. FRUSEMIDE SANDOZ [Suspect]
     Active Substance: FUROSEMIDE
     Dosage: UNK, PRN (PRN BASIS)
     Route: 065
     Dates: start: 202102
  6. ASPIRIN. [Suspect]
     Active Substance: ASPIRIN
     Indication: CARDIAC FAILURE
     Dosage: 100 MG (DAILY)
     Route: 065
  7. RAMIPRIL. [Suspect]
     Active Substance: RAMIPRIL
     Indication: CARDIAC FAILURE
     Dosage: 2.5 MG, QD (DAILY)
     Route: 065
  8. BISOPROLOL [Suspect]
     Active Substance: BISOPROLOL
     Dosage: 5 MG, QD
     Route: 065
  9. SACUBITRIL,VALSARTAN [Suspect]
     Active Substance: SACUBITRIL\VALSARTAN
     Indication: PRODUCT USED FOR UNKNOWN INDICATION
     Dosage: (24/26 MG), BID
     Route: 065

REACTIONS (5)
  - Orthopnoea [Recovered/Resolved]
  - Dyspnoea [Recovering/Resolving]
  - Upper respiratory tract infection [Unknown]
  - Dyspnoea paroxysmal nocturnal [Recovered/Resolved]
  - Malaise [Unknown]

NARRATIVE: CASE EVENT DATE: 202003
